FAERS Safety Report 8428518-5 (Version None)
Quarter: 2012Q2

REPORT INFORMATION
  Report Type: 
  Country: None (occurrence: None)
  Receive Date: 20120612
  Receipt Date: 20120531
  Transmission Date: 20120825
  Serious: Yes (Hospitalization)
  Sender: FDA-Public Use
  Company Number: SE-AMGEN-SWECT2012031272

PATIENT
  Age: 78 Year
  Sex: Male

DRUGS (7)
  1. NSAID'S [Concomitant]
     Dosage: UNK
     Dates: start: 20031117, end: 20040225
  2. METHOTREXATE [Concomitant]
     Dosage: UNK
     Dates: start: 19960529, end: 20031117
  3. NSAID'S [Concomitant]
     Dosage: UNK
     Dates: start: 20060521
  4. NSAID'S [Concomitant]
     Dosage: UNK
     Dates: start: 20040519, end: 20050523
  5. ETANERCEPT [Suspect]
     Indication: RHEUMATOID ARTHRITIS
     Dosage: 50 MG, QWK
     Route: 058
     Dates: start: 20031117, end: 20101119
  6. NSAID'S [Concomitant]
     Dosage: UNK
     Dates: start: 19960221, end: 19990126
  7. METHOTREXATE [Concomitant]
     Dosage: UNK
     Dates: start: 20040225

REACTIONS (1)
  - MALIGNANT URINARY TRACT NEOPLASM [None]
